FAERS Safety Report 12462447 (Version 4)
Quarter: 2016Q3

REPORT INFORMATION
  Report Type: Spontaneous
  Country: BR (occurrence: BR)
  Receive Date: 20160614
  Receipt Date: 20160817
  Transmission Date: 20161109
  Serious: Yes (Disabling, Other)
  Sender: FDA-Public Use
  Company Number: BR-ASTRAZENECA-2016SE61836

PATIENT
  Age: 25248 Day
  Sex: Female

DRUGS (2)
  1. SELOZOK [Suspect]
     Active Substance: METOPROLOL SUCCINATE
     Indication: HYPERTENSION
     Route: 048
     Dates: start: 201602
  2. ATACAND [Suspect]
     Active Substance: CANDESARTAN CILEXETIL
     Indication: HYPERTENSION
     Route: 048
     Dates: start: 20160419

REACTIONS (5)
  - Drug ineffective [Unknown]
  - Fall [Recovered/Resolved]
  - Off label use [Not Recovered/Not Resolved]
  - Hand fracture [Recovering/Resolving]
  - Hypertension [Recovered/Resolved]

NARRATIVE: CASE EVENT DATE: 20160419
